FAERS Safety Report 8962337 (Version 1)
Quarter: 2012Q4

REPORT INFORMATION
  Report Type: Spontaneous
  Country: US (occurrence: None)
  Receive Date: 20121211
  Receipt Date: 20121211
  Transmission Date: 20130627
  Serious: Yes (Other)
  Sender: FDA-Public Use
  Company Number: None

PATIENT
  Age: 22 Year
  Sex: Female
  Weight: 48.99 kg

DRUGS (1)
  1. METRONIDAZOLE [Suspect]
     Indication: PELVIC ABSCESS
     Dosage: 2 tablets 2 times a day orally
     Route: 048
     Dates: start: 20121123, end: 20121124

REACTIONS (3)
  - Paraesthesia [None]
  - Headache [None]
  - Vision blurred [None]
